FAERS Safety Report 4429542-X (Version None)
Quarter: 2004Q3

REPORT INFORMATION
  Report Type: 
  Country: None (occurrence: None)
  Receive Date: 20040819
  Receipt Date: 20040813
  Transmission Date: 20050211
  Serious: Yes (Hospitalization)
  Sender: FDA-Public Use
  Company Number: US-GLAXOSMITHKLINE-A0522117A

PATIENT
  Sex: Female

DRUGS (6)
  1. DYAZIDE [Suspect]
     Dosage: 37.5MG PER DAY
     Route: 048
  2. LASIX [Suspect]
  3. TIAZAC [Concomitant]
  4. TOPROL-XL [Concomitant]
  5. MULTIVITAMIN [Concomitant]
  6. SEMARA [Concomitant]

REACTIONS (2)
  - DEHYDRATION [None]
  - URINARY INCONTINENCE [None]
